FAERS Safety Report 5398986-4 (Version None)
Quarter: 2007Q3

REPORT INFORMATION
  Report Type: 
  Country: None (occurrence: None)
  Receive Date: 20070727
  Receipt Date: 20070724
  Transmission Date: 20080115
  Serious: Yes (Other)
  Sender: FDA-Public Use
  Company Number: US-BAYER-200712137BCC

PATIENT
  Age: 80 Year
  Sex: Female
  Weight: 64 kg

DRUGS (5)
  1. ASPIRIN [Suspect]
     Indication: ISCHAEMIC HEART DISEASE PROPHYLAXIS
     Dosage: TOTAL DAILY DOSE: 81 MG  UNIT DOSE: 81 MG
     Route: 048
     Dates: end: 20070702
  2. FOSAMAX [Concomitant]
  3. NEXIUM [Concomitant]
     Indication: CHEST DISCOMFORT
  4. SANCTURA [Concomitant]
  5. SIMVASTATIN [Concomitant]

REACTIONS (1)
  - HYPOACUSIS [None]
